FAERS Safety Report 10086026 (Version 3)
Quarter: 2014Q2

REPORT INFORMATION
  Report Type: Spontaneous
  Country: ZA (occurrence: ZA)
  Receive Date: 20140418
  Receipt Date: 20140607
  Transmission Date: 20141212
  Serious: Yes (Death, Hospitalization, Other)
  Sender: FDA-Public Use
  Company Number: PHHY2014ZA047380

PATIENT
  Sex: Male

DRUGS (3)
  1. GLEEVEC [Suspect]
     Indication: CHRONIC MYELOID LEUKAEMIA
     Dosage: UNK UKN, UNK
     Route: 048
  2. TASIGNA [Suspect]
     Indication: CHRONIC MYELOID LEUKAEMIA
     Dosage: UNK UKN, UNK
     Route: 048
  3. SPRYCEL//DASATINIB [Suspect]
     Indication: CHRONIC MYELOID LEUKAEMIA
     Dosage: UNK UKN, UNK
     Route: 048

REACTIONS (15)
  - Myocardial infarction [Fatal]
  - Septic shock [Fatal]
  - Infection [Fatal]
  - Brain injury [Fatal]
  - Coma [Fatal]
  - General physical health deterioration [Unknown]
  - Blast crisis in myelogenous leukaemia [Unknown]
  - Chronic myeloid leukaemia transformation [Unknown]
  - Decreased immune responsiveness [Unknown]
  - Nephrolithiasis [Unknown]
  - Pancytopenia [Unknown]
  - Malaise [Unknown]
  - Drug ineffective [Unknown]
  - White blood cell count decreased [Unknown]
  - No therapeutic response [Unknown]
